FAERS Safety Report 6857060-8 (Version None)
Quarter: 2010Q3

REPORT INFORMATION
  Report Type: 
  Country: None (occurrence: None)
  Receive Date: 20100719
  Receipt Date: 20100712
  Transmission Date: 20110219
  Serious: Yes (Death)
  Sender: FDA-Public Use
  Company Number: A0870914A

PATIENT
  Sex: Female

DRUGS (1)
  1. SERETIDE [Suspect]
     Dosage: 1PUFF IN THE MORNING
     Route: 055
     Dates: start: 20070101, end: 20100625

REACTIONS (2)
  - PERIPHERAL VASCULAR DISORDER [None]
  - RESPIRATORY FAILURE [None]
